FAERS Safety Report 9170920 (Version 1)
Quarter: 2013Q1

REPORT INFORMATION
  Report Type: Spontaneous
  Country: LB (occurrence: None)
  Receive Date: 20130311
  Receipt Date: 20130311
  Transmission Date: 20140127
  Serious: Yes (Hospitalization, Other)
  Sender: FDA-Public Use
  Company Number: SYM-2013-01419

PATIENT
  Sex: Male

DRUGS (4)
  1. 5-FU (FLUOROURACIL) (SOLUTION FOR RINFUSION) *FLUOROURACIL) [Suspect]
     Indication: COLORECTAL CANCER METASTATIC
     Dosage: EVERY OTHER WEEK, INTRAVENOUS DRIP
     Route: 042
     Dates: start: 20130207, end: 20130207
  2. IRINOTECAN (IRINOTECAN) (SOLUTION FOR INFUSION) (IRINOTECAN) [Suspect]
     Indication: COLORECTAL CANCER METASTATIC
     Dosage: EVERY OTHER WEEK, INTRAVENOUS ( NOT OTHERWISE SPECIFIED)
     Route: 042
     Dates: start: 20130207, end: 20130207
  3. LEUCOVORIN (FOLINIC ACID) (SOL UTION FOR INFUSION) (FOLINIC ACID) [Suspect]
     Indication: COLORECTAL CANCER METASTATIC
     Dosage: EVERY OTHER WEEK, INTRAVENOUS ( NOT OTHERWISE SPECIFIED)
     Route: 042
     Dates: start: 20130207, end: 20130207
  4. ZALTRAP (AFLIBERCEPT) (SOLUTION FOR INFUSION) (AFLIBERCEPT) [Suspect]
     Indication: COLORECTAL CANCER METASTATIC
     Dates: start: 20130207, end: 20130207

REACTIONS (1)
  - Diarrhoea [None]
